FAERS Safety Report 7707565-2 (Version None)
Quarter: 2011Q3

REPORT INFORMATION
  Report Type: 
  Country: None (occurrence: None)
  Receive Date: 20110818
  Receipt Date: 20110808
  Transmission Date: 20111222
  Serious: Yes (Other)
  Sender: FDA-Public Use
  Company Number: WAES 1108USA00885

PATIENT
  Age: 50 Year
  Sex: Male

DRUGS (5)
  1. HYDRODIURIL [Suspect]
     Dosage: PO
     Route: 048
  2. SUDAFED 12 HOUR [Suspect]
  3. ZOCOR [Suspect]
     Dosage: PO
     Route: 048
  4. VIAGRA [Suspect]
  5. FENTANYL [Suspect]

REACTIONS (3)
  - DRUG HYPERSENSITIVITY [None]
  - MYOCARDIAL INFARCTION [None]
  - CORONARY ARTERY OCCLUSION [None]
